FAERS Safety Report 17078774 (Version 1)
Quarter: 2019Q4

REPORT INFORMATION
  Report Type: Spontaneous
  Country: FR (occurrence: FR)
  Receive Date: 20191127
  Receipt Date: 20191127
  Transmission Date: 20200122
  Serious: Yes (Other)
  Sender: FDA-Public Use
  Company Number: FR-LUPIN PHARMACEUTICALS INC.-2019-07735

PATIENT
  Age: 63 Year
  Sex: Male

DRUGS (1)
  1. METHYLPREDNISOLONE. [Suspect]
     Active Substance: METHYLPREDNISOLONE
     Indication: MULTIPLE SCLEROSIS
     Dosage: UNK (10 PULSES)
     Route: 065
     Dates: start: 2006, end: 2008

REACTIONS (3)
  - Immune thrombocytopenic purpura [Recovered/Resolved]
  - Gingival bleeding [Recovered/Resolved]
  - Purpura [Recovered/Resolved]
